FAERS Safety Report 9294174 (Version 1)
Quarter: 2013Q1

REPORT INFORMATION
  Report Type: Spontaneous
  Country: US (occurrence: None)
  Receive Date: 20121226
  Receipt Date: 20121226
  Transmission Date: 20140127
  Serious: Yes (Other)
  Sender: FDA-Public Use
  Company Number: 356113

PATIENT
  Sex: Female

DRUGS (1)
  1. LEVEMIR [Suspect]
     Indication: TYPE 2 DIABETES MELLITUS
     Route: 058

REACTIONS (1)
  - Angioedema [None]
